FAERS Safety Report 21086794 (Version 4)
Quarter: 2022Q3

REPORT INFORMATION
  Report Type: Spontaneous
  Country: US (occurrence: US)
  Receive Date: 20220715
  Receipt Date: 20220824
  Transmission Date: 20221027
  Serious: No
  Sender: FDA-Public Use
  Company Number: US-PFIZER INC-202200912487

PATIENT
  Age: 51 Year
  Sex: Female
  Weight: 48.53 kg

DRUGS (1)
  1. GENOTROPIN [Suspect]
     Active Substance: SOMATROPIN
     Dosage: 0.4 MG, DAILY, (0.4 MG (STOMACH)

REACTIONS (2)
  - Expired device used [Unknown]
  - Device use issue [Unknown]

NARRATIVE: CASE EVENT DATE: 20220628
